FAERS Safety Report 21999835 (Version 1)
Quarter: 2023Q1

REPORT INFORMATION
  Report Type: Report from Study
  Country: IL (occurrence: IL)
  Receive Date: 20230216
  Receipt Date: 20230216
  Transmission Date: 20230417
  Serious: Yes (Hospitalization, Other)
  Sender: FDA-Public Use
  Company Number: IL-PFIZER INC-202300061183

PATIENT
  Age: 80 Year
  Sex: Male

DRUGS (12)
  1. PAXLOVID [Suspect]
     Active Substance: NIRMATRELVIR\RITONAVIR
     Indication: COVID-19 treatment
     Dosage: UNK
     Route: 048
     Dates: start: 20220202
  2. PAXLOVID [Suspect]
     Active Substance: NIRMATRELVIR\RITONAVIR
     Dosage: UNK
     Route: 048
     Dates: start: 202203
  3. PAXLOVID [Suspect]
     Active Substance: NIRMATRELVIR\RITONAVIR
     Dosage: UNK
     Route: 048
     Dates: start: 202204
  4. PAXLOVID [Suspect]
     Active Substance: NIRMATRELVIR\RITONAVIR
     Dosage: UNK
     Route: 048
     Dates: start: 202208
  5. PAXLOVID [Suspect]
     Active Substance: NIRMATRELVIR\RITONAVIR
     Dosage: UNK
     Route: 048
     Dates: start: 202210
  6. REMDESIVIR [Suspect]
     Active Substance: REMDESIVIR
     Dosage: UNK
     Dates: start: 202203
  7. REMDESIVIR [Suspect]
     Active Substance: REMDESIVIR
     Dosage: UNK
     Dates: start: 202203
  8. REMDESIVIR [Suspect]
     Active Substance: REMDESIVIR
     Dosage: UNK
     Dates: start: 202204
  9. REMDESIVIR [Suspect]
     Active Substance: REMDESIVIR
     Dosage: UNK
     Dates: start: 202208
  10. DEXAMETHASONE [Concomitant]
     Active Substance: DEXAMETHASONE
  11. TOCILIZUMAB [Concomitant]
     Active Substance: TOCILIZUMAB
  12. EVUSHELD [Concomitant]
     Active Substance: CILGAVIMAB\TIXAGEVIMAB

REACTIONS (2)
  - COVID-19 [Unknown]
  - Weight decreased [Unknown]

NARRATIVE: CASE EVENT DATE: 20220301
